FAERS Safety Report 8175899-6 (Version None)
Quarter: 2012Q1

REPORT INFORMATION
  Report Type: 
  Country: None (occurrence: None)
  Receive Date: 20120228
  Receipt Date: 20120217
  Transmission Date: 20120608
  Serious: Yes (Life-Threatening)
  Sender: FDA-Public Use
  Company Number: 2012SP008850

PATIENT
  Age: 49 Year
  Sex: Female

DRUGS (1)
  1. CERAZETTE (DESOGESTREL /00754001/) [Suspect]
     Indication: CONTRACEPTION
     Dosage: 1 DF;
     Dates: start: 20120216, end: 20120217

REACTIONS (3)
  - DRUG HYPERSENSITIVITY [None]
  - TACHYCARDIA [None]
  - DIZZINESS [None]
